FAERS Safety Report 7637714-6 (Version None)
Quarter: 2011Q3

REPORT INFORMATION
  Report Type: 
  Country: None (occurrence: None)
  Receive Date: 20110727
  Receipt Date: 20110720
  Transmission Date: 20111222
  Serious: Yes (Hospitalization)
  Sender: FDA-Public Use
  Company Number: FR-BRISTOL-MYERS SQUIBB COMPANY-15912934

PATIENT
  Age: 64 Year
  Sex: Female

DRUGS (11)
  1. ONGLYZA [Suspect]
     Indication: TYPE 2 DIABETES MELLITUS
     Dosage: ONE FILM-COATED TABLET
     Route: 048
     Dates: end: 20110405
  2. CALCIUM CARBONATE [Concomitant]
  3. XANAX [Concomitant]
  4. CHOLECALCIFEROL [Concomitant]
  5. RAMIPRIL [Concomitant]
  6. ATORVASTATIN CALCIUM [Concomitant]
  7. METFORMIN HCL [Suspect]
     Indication: TYPE 2 DIABETES MELLITUS
     Route: 048
     Dates: end: 20110405
  8. MIRTAZAPINE [Concomitant]
  9. RILMENIDINE [Concomitant]
  10. VASTAREL [Concomitant]
  11. BISOPROLOL FUMARATE [Concomitant]

REACTIONS (4)
  - HYPOGLYCAEMIA [None]
  - VOMITING [None]
  - CLOSTRIDIUM DIFFICILE COLITIS [None]
  - RENAL FAILURE ACUTE [None]
